FAERS Safety Report 7321017-3 (Version None)
Quarter: 2011Q1

REPORT INFORMATION
  Report Type: 
  Country: None (occurrence: None)
  Receive Date: 20110228
  Receipt Date: 20110218
  Transmission Date: 20110831
  Serious: Yes (Death)
  Sender: FDA-Public Use
  Company Number: US-JNJFOC-20101002281

PATIENT
  Sex: Female
  Weight: 77.11 kg

DRUGS (8)
  1. METHADONE [Concomitant]
     Route: 065
  2. PROPOXYPHENE HYDROCHLORIDE [Concomitant]
     Route: 065
  3. ACETAMINOPHEN [Concomitant]
     Route: 065
  4. TRAMADOL HCL [Concomitant]
  5. XANAX [Concomitant]
  6. DURAGESIC-50 [Suspect]
     Indication: PAIN
     Route: 062
  7. SOMA [Concomitant]
  8. VIVELLE-DOT [Concomitant]

REACTIONS (3)
  - TOXICITY TO VARIOUS AGENTS [None]
  - DRUG INEFFECTIVE [None]
  - DRUG DOSE OMISSION [None]
